FAERS Safety Report 10380210 (Version 2)
Quarter: 2014Q3

REPORT INFORMATION
  Report Type: Report from Study
  Country: AU (occurrence: AU)
  Receive Date: 20140813
  Receipt Date: 20140813
  Transmission Date: 20150326
  Serious: Yes (Life-Threatening, Hospitalization, Other)
  Sender: FDA-Public Use
  Company Number: AU-BRISTOL-MYERS SQUIBB COMPANY-16275430

PATIENT
  Age: 56 Year
  Sex: Male

DRUGS (9)
  1. METHOTREXATE [Concomitant]
     Active Substance: METHOTREXATE
  2. ASPRO [Concomitant]
     Active Substance: ASPIRIN\SODIUM BICARBONATE
  3. CELEBREX [Concomitant]
     Active Substance: CELECOXIB
  4. FOLIC ACID. [Concomitant]
     Active Substance: FOLIC ACID
  5. PREDNISOLONE. [Concomitant]
     Active Substance: PREDNISOLONE
  6. LIPITOR [Concomitant]
     Active Substance: ATORVASTATIN CALCIUM
  7. FOSAMAX [Concomitant]
     Active Substance: ALENDRONATE SODIUM
  8. SOMAC [Concomitant]
     Active Substance: PANTOPRAZOLE SODIUM
  9. ORENCIA [Suspect]
     Active Substance: ABATACEPT
     Indication: RHEUMATOID ARTHRITIS
     Route: 042
     Dates: start: 20091021

REACTIONS (2)
  - Myocardial infarction [Recovered/Resolved]
  - Coronary artery disease [Unknown]

NARRATIVE: CASE EVENT DATE: 201008
